FAERS Safety Report 4941249-9 (Version None)
Quarter: 2006Q1

REPORT INFORMATION
  Report Type: 
  Country: None (occurrence: None)
  Receive Date: 20060310
  Receipt Date: 20060310
  Transmission Date: 20060701
  Serious: Yes (Hospitalization)
  Sender: FDA-Public Use
  Company Number: None

PATIENT
  Age: 72 Year
  Sex: Female
  Weight: 102 kg

DRUGS (9)
  1. MORPHINE SULFATE [Suspect]
     Indication: PROCEDURAL PAIN
     Dosage: 4 MG EVERY 3 HOURS PRN IV
     Route: 042
     Dates: start: 20051108, end: 20051118
  2. FENTANYL CITRATE [Suspect]
     Dosage: 50 MCG EVERY 72 HOURS PATCH
     Route: 062
     Dates: start: 20051113, end: 20051116
  3. NORVASC [Concomitant]
  4. NEXIUM [Concomitant]
  5. ECOTRIN [Concomitant]
  6. METOPROLOL [Concomitant]
  7. PLAVIX [Concomitant]
  8. NAFCILLIN [Concomitant]
  9. LOVENOX [Concomitant]

REACTIONS (2)
  - LOSS OF CONSCIOUSNESS [None]
  - RESPIRATORY ARREST [None]
